FAERS Safety Report 14296766 (Version 1)
Quarter: 2017Q4

REPORT INFORMATION
  Report Type: Spontaneous
  Country: US (occurrence: US)
  Receive Date: 20171218
  Receipt Date: 20171218
  Transmission Date: 20180321
  Serious: Yes (Other)
  Sender: FDA-Public Use
  Company Number: PHHY2017US183461

PATIENT
  Age: 21 Year
  Sex: Female

DRUGS (2)
  1. METHOTREXATE. [Suspect]
     Active Substance: METHOTREXATE
     Indication: FIBROMATOSIS
     Route: 065
  2. VINBLASTINE [Suspect]
     Active Substance: VINBLASTINE
     Indication: FIBROMATOSIS
     Route: 065

REACTIONS (7)
  - Respiratory failure [Unknown]
  - Fibromatosis [Unknown]
  - Hypoaesthesia [Unknown]
  - Product use in unapproved indication [Unknown]
  - Insomnia [Unknown]
  - Malignant neoplasm progression [Unknown]
  - Pain [Unknown]
